FAERS Safety Report 12156277 (Version 1)
Quarter: 2016Q1

REPORT INFORMATION
  Report Type: Spontaneous
  Country: JP (occurrence: JP)
  Receive Date: 20160307
  Receipt Date: 20160307
  Transmission Date: 20160526
  Serious: Yes (Hospitalization)
  Sender: FDA-Public Use
  Company Number: JP-BAUSCH-BL-2016-005501

PATIENT
  Age: 74 Year
  Sex: Male

DRUGS (4)
  1. HERBESSER [Suspect]
     Active Substance: DILTIAZEM HYDROCHLORIDE
     Indication: PRODUCT USED FOR UNKNOWN INDICATION
     Route: 065
  2. SUTENT [Suspect]
     Active Substance: SUNITINIB MALATE
     Indication: METASTATIC RENAL CELL CARCINOMA
     Route: 048
     Dates: start: 20101015, end: 20110520
  3. SUTENT [Suspect]
     Active Substance: SUNITINIB MALATE
     Route: 048
     Dates: start: 20150201, end: 20150920
  4. SUTENT [Suspect]
     Active Substance: SUNITINIB MALATE
     Dosage: EVERY CYCLE
     Route: 048
     Dates: start: 20110603, end: 20141022

REACTIONS (3)
  - Atrial fibrillation [Unknown]
  - Oedema [Unknown]
  - Cardiac failure congestive [Recovering/Resolving]

NARRATIVE: CASE EVENT DATE: 201509
